FAERS Safety Report 26043760 (Version 1)
Quarter: 2025Q4

REPORT INFORMATION
  Report Type: Spontaneous
  Country: CN (occurrence: CN)
  Receive Date: 20251113
  Receipt Date: 20251113
  Transmission Date: 20260118
  Serious: Yes (Hospitalization, Other)
  Sender: BAXTER
  Company Number: None

PATIENT
  Sex: Male
  Weight: 7.2 kg

DRUGS (9)
  1. CYCLOPHOSPHAMIDE [Suspect]
     Active Substance: CYCLOPHOSPHAMIDE
     Indication: Neuroblastoma
     Dosage: 0.2 G, QD
     Route: 041
     Dates: start: 20250922, end: 20250922
  2. SODIUM CHLORIDE [Suspect]
     Active Substance: SODIUM CHLORIDE
     Dosage: 30 ML, QD (CYCLOPHOSPHAMIDE+0.9% SODIUM CHLORIDE BY INTRAVENOUS MICROPUMP)
     Route: 041
     Dates: start: 20250922, end: 20250922
  3. SODIUM CHLORIDE [Suspect]
     Active Substance: SODIUM CHLORIDE
     Dosage: 10 ML, QD (VINCRISTINE SULFATE+0.9% SODIUM CHLORIDE INJECTION BY INTRAVENOUS PUSH)
     Route: 041
     Dates: start: 20250922, end: 20250922
  4. SODIUM CHLORIDE [Suspect]
     Active Substance: SODIUM CHLORIDE
     Dosage: 120 ML, QD (CISPLATIN+ 0.9% SODIUM CHLORIDE INJECTION INTRAVENOUS MICROPUMP)
     Route: 041
     Dates: start: 20250923, end: 20250923
  5. SODIUM CHLORIDE [Suspect]
     Active Substance: SODIUM CHLORIDE
     Dosage: 30 ML, QD (DOXORUBICIN HYDROCHLORIDE+ 0.9% SODIUM CHLORIDE INJECTION BY INTRAVENOUS MICROPUMP)
     Route: 041
     Dates: start: 20250925, end: 20250925
  6. DOXORUBICIN HYDROCHLORIDE [Suspect]
     Active Substance: DOXORUBICIN HYDROCHLORIDE
     Indication: Neuroblastoma
     Dosage: 5.4 MG, QD (INTRAVENOUS MICROPUMP)
     Route: 041
     Dates: start: 20250925, end: 20250925
  7. VINCRISTINE SULFATE [Suspect]
     Active Substance: VINCRISTINE SULFATE
     Indication: Neuroblastoma
     Dosage: 0.27 MG, QD (INTRAVENOUS PUSH)
     Route: 041
     Dates: start: 20250922, end: 20250922
  8. CISPLATIN [Suspect]
     Active Substance: CISPLATIN
     Indication: Neuroblastoma
     Dosage: 16.2 G, QD (INTRAVENOUS MICROPUMP)
     Route: 041
     Dates: start: 20250923, end: 20250923
  9. ANF-RHO [Concomitant]
     Active Substance: ANF-RHO
     Indication: Colony stimulating factor therapy
     Dosage: 0.8 MG, ST
     Route: 058
     Dates: start: 20250927

REACTIONS (15)
  - Tachypnoea [Recovering/Resolving]
  - Retching [Recovering/Resolving]
  - Electrolyte imbalance [Recovering/Resolving]
  - Irritability [Recovering/Resolving]
  - Laryngeal oedema [Recovering/Resolving]
  - Fontanelle bulging [Recovering/Resolving]
  - Myelosuppression [Recovering/Resolving]
  - Anaemia [Recovering/Resolving]
  - Pneumonia [Recovering/Resolving]
  - Respiratory failure [Recovering/Resolving]
  - Dyspnoea [Recovering/Resolving]
  - Pyrexia [Recovered/Resolved]
  - Pyrexia [Recovering/Resolving]
  - Pneumonitis [Recovering/Resolving]
  - Productive cough [Recovering/Resolving]

NARRATIVE: CASE EVENT DATE: 20250928
